FAERS Safety Report 14556164 (Version 2)
Quarter: 2018Q2

REPORT INFORMATION
  Report Type: Spontaneous
  Country: US (occurrence: US)
  Receive Date: 20180221
  Receipt Date: 20180411
  Transmission Date: 20180711
  Serious: No
  Sender: FDA-Public Use
  Company Number: US-ASTRAZENECA-2018SE11185

PATIENT
  Age: 47 Year
  Sex: Female
  Weight: 101.6 kg

DRUGS (1)
  1. BYDUREON [Suspect]
     Active Substance: EXENATIDE
     Indication: TYPE 2 DIABETES MELLITUS
     Route: 058
     Dates: start: 2016

REACTIONS (6)
  - Weight fluctuation [Unknown]
  - Product packaging quantity issue [Unknown]
  - Oedema [Unknown]
  - Wrong technique in product usage process [Unknown]
  - Visual acuity reduced [Unknown]
  - Product quality issue [Unknown]

NARRATIVE: CASE EVENT DATE: 2016
